FAERS Safety Report 4601716-4 (Version None)
Quarter: 2005Q1

REPORT INFORMATION
  Report Type: 
  Country: None (occurrence: None)
  Receive Date: 20050131
  Receipt Date: 20041217
  Transmission Date: 20050727
  Serious: No
  Sender: FDA-Public Use
  Company Number: 200419735US

PATIENT
  Age: 30 Year
  Sex: Female

DRUGS (1)
  1. KETEK [Suspect]
     Dosage: 400 MG

REACTIONS (1)
  - VISION BLURRED [None]
